FAERS Safety Report 16122400 (Version 1)
Quarter: 2019Q1

REPORT INFORMATION
  Report Type: Report from Study
  Country: GB (occurrence: GB)
  Receive Date: 20190327
  Receipt Date: 20190327
  Transmission Date: 20190418
  Serious: Yes (Other)
  Sender: FDA-Public Use
  Company Number: PHHY2019GB067867

PATIENT
  Age: 63 Year
  Sex: Male
  Weight: 85 kg

DRUGS (1)
  1. ENTRESTO [Suspect]
     Active Substance: SACUBITRIL\VALSARTAN
     Indication: LEFT VENTRICULAR DYSFUNCTION
     Dosage: 50 MG (SACUBITRIL 24MG/VALSARTAN 26MG), BID
     Route: 048
     Dates: start: 20190201, end: 20190214

REACTIONS (1)
  - Sensory disturbance [Recovered/Resolved with Sequelae]

NARRATIVE: CASE EVENT DATE: 20190204
